FAERS Safety Report 6380161-8 (Version None)
Quarter: 2009Q3

REPORT INFORMATION
  Report Type: 
  Country: None (occurrence: None)
  Receive Date: 20090929
  Receipt Date: 20090925
  Transmission Date: 20100115
  Serious: Yes (Life-Threatening)
  Sender: FDA-Public Use
  Company Number: JP-JNJFOC-20090808891

PATIENT
  Sex: Female

DRUGS (9)
  1. ITRIZOLE [Suspect]
     Route: 041
     Dates: start: 20080122, end: 20080128
  2. ITRIZOLE [Suspect]
     Indication: FUNGAEMIA
     Route: 041
     Dates: start: 20080122, end: 20080128
  3. MEROPENEM TRIHYDRATE [Concomitant]
     Indication: POSTRESUSCITATION ENCEPHALOPATHY
     Route: 042
  4. RADICUT [Concomitant]
     Indication: POSTRESUSCITATION ENCEPHALOPATHY
     Route: 042
  5. DIPRIVAN [Concomitant]
     Indication: POSTRESUSCITATION ENCEPHALOPATHY
     Route: 042
  6. CLINDAMYCIN [Concomitant]
     Indication: POSTRESUSCITATION ENCEPHALOPATHY
     Route: 042
  7. PASIL [Concomitant]
     Indication: PNEUMONIA
     Route: 042
  8. GASTER [Concomitant]
     Indication: PROPHYLAXIS
     Route: 042
  9. ELASPOL [Concomitant]
     Indication: ACUTE RESPIRATORY DISTRESS SYNDROME
     Route: 041

REACTIONS (3)
  - ACUTE RESPIRATORY DISTRESS SYNDROME [None]
  - RENAL IMPAIRMENT [None]
  - WHITE BLOOD CELL COUNT DECREASED [None]
